FAERS Safety Report 9180545 (Version 3)
Quarter: 2013Q2

REPORT INFORMATION
  Report Type: Spontaneous
  Country: US (occurrence: US)
  Receive Date: 20130322
  Receipt Date: 20130515
  Transmission Date: 20140414
  Serious: Yes (Hospitalization)
  Sender: FDA-Public Use
  Company Number: US-009507513-1303USA009229

PATIENT
  Age: 52 Year
  Sex: Female
  Weight: 133 kg

DRUGS (12)
  1. INVANZ [Suspect]
     Indication: OSTEOMYELITIS
     Dosage: 1 G, QD
     Route: 042
     Dates: start: 20130303, end: 20130313
  2. INVANZ [Suspect]
     Indication: PNEUMONIA
  3. VERAPAMIL [Concomitant]
     Dosage: 240 MG, QD
  4. SYMBICORT [Concomitant]
     Dosage: 160/4.5 TWO PUFFS, BID
  5. SYNTHROID [Concomitant]
     Dosage: 150 MICROGRAM, QD
  6. SINGULAIR [Concomitant]
     Dosage: 10 MG, QD
  7. SPIRIVA [Concomitant]
     Dosage: ONE PUFF, DAILY
  8. THEO-DUR [Concomitant]
     Dosage: 200 MG, BID
  9. PULMICORT [Concomitant]
     Dosage: 0.5 MG NEBULIZER, PRN
  10. CLARITIN [Concomitant]
     Dosage: 10 MG, QD
  11. DUONEB [Concomitant]
     Dosage: EVERY 4 HOURS AS NEEDED
  12. GLOBULIN, IMMUNE [Concomitant]
     Dosage: 40 G, EVERY 4 MONTHS
     Route: 042

REACTIONS (2)
  - Respiratory distress [Recovered/Resolved]
  - Eosinophilia [Recovered/Resolved]
